FAERS Safety Report 12169585 (Version 1)
Quarter: 2016Q1

REPORT INFORMATION
  Report Type: Spontaneous
  Country: CH (occurrence: CH)
  Receive Date: 20160310
  Receipt Date: 20160310
  Transmission Date: 20160526
  Serious: Yes (Other)
  Sender: FDA-Public Use
  Company Number: CH-SA-2016SA043392

PATIENT
  Age: 23 Year
  Sex: Male

DRUGS (13)
  1. SINTENYL [Concomitant]
     Active Substance: FENTANYL CITRATE
     Route: 040
     Dates: start: 20160206, end: 20160214
  2. HALDOL [Suspect]
     Active Substance: HALOPERIDOL
     Route: 040
     Dates: start: 20160207, end: 20160207
  3. TRANDATE [Suspect]
     Active Substance: LABETALOL HYDROCHLORIDE
     Dosage: FORM: VIAL
     Route: 040
     Dates: start: 20160208, end: 20160209
  4. ANXIOLIT [Concomitant]
     Active Substance: OXAZEPAM
     Route: 048
     Dates: start: 20160207
  5. BENERVA [Concomitant]
     Active Substance: THIAMINE
     Dosage: FORM STRENGTH: 300 MG
     Route: 048
     Dates: start: 20160210, end: 20160212
  6. CLEXANE [Suspect]
     Active Substance: ENOXAPARIN SODIUM
     Dosage: FORM: VIALS
     Route: 058
     Dates: start: 20160208
  7. CARDENE [Suspect]
     Active Substance: NICARDIPINE HYDROCHLORIDE
     Route: 040
     Dates: start: 20160209, end: 20160210
  8. HEPARIN [Suspect]
     Active Substance: HEPARIN SODIUM
     Route: 040
     Dates: start: 20160207, end: 20160208
  9. PROPOFOL. [Suspect]
     Active Substance: PROPOFOL
     Route: 040
     Dates: start: 20160206, end: 20160214
  10. NEXIUM [Suspect]
     Active Substance: ESOMEPRAZOLE MAGNESIUM
     Route: 048
     Dates: start: 20160206, end: 20160211
  11. DAFALGAN [Suspect]
     Active Substance: ACETAMINOPHEN
     Route: 048
     Dates: start: 20160206
  12. ZYPREXA [Concomitant]
     Active Substance: OLANZAPINE
     Dosage: FORM STRENGTH: 10 MG
     Route: 048
     Dates: start: 20160208
  13. DEXDOR [Concomitant]
     Active Substance: DEXMEDETOMIDINE HYDROCHLORIDE
     Route: 040
     Dates: start: 20160207, end: 20160210

REACTIONS (1)
  - Mixed liver injury [Recovering/Resolving]

NARRATIVE: CASE EVENT DATE: 20160210
